FAERS Safety Report 4704372-X (Version None)
Quarter: 2005Q2

REPORT INFORMATION
  Report Type: 
  Country: None (occurrence: None)
  Receive Date: 20050628
  Receipt Date: 20050617
  Transmission Date: 20051028
  Serious: Yes (Hospitalization)
  Sender: FDA-Public Use
  Company Number: 200510420BFR

PATIENT
  Age: 53 Year
  Sex: Male

DRUGS (5)
  1. NIMOTOP [Suspect]
     Dates: start: 20050503, end: 20050512
  2. NIMOTOP [Suspect]
     Dates: start: 20050401
  3. CLAFORAN [Suspect]
     Dates: start: 20050418, end: 20050515
  4. XATRAL (ALFUZOSIN) [Suspect]
     Dosage: 5 MG, QD, ORAL
     Route: 048
     Dates: start: 20050421, end: 20050518
  5. FRAGMIN [Concomitant]

REACTIONS (3)
  - AGRANULOCYTOSIS [None]
  - RASH [None]
  - SPINAL MYELOGRAM ABNORMAL [None]
